FAERS Safety Report 6845220-1 (Version None)
Quarter: 2010Q3

REPORT INFORMATION
  Report Type: 
  Country: None (occurrence: None)
  Receive Date: 20100715
  Receipt Date: 20070815
  Transmission Date: 20110219
  Serious: No
  Sender: FDA-Public Use
  Company Number: US-PFIZER INC-2007068891

PATIENT
  Sex: Female
  Weight: 54.5 kg

DRUGS (5)
  1. CHANTIX [Suspect]
     Indication: SMOKING CESSATION THERAPY
     Dates: start: 20070806
  2. NEXIUM [Concomitant]
  3. ALPRAZOLAM [Concomitant]
  4. LOVASTATIN [Concomitant]
  5. DUONEB [Concomitant]

REACTIONS (4)
  - FATIGUE [None]
  - HEADACHE [None]
  - MUSCLE TIGHTNESS [None]
  - PANIC REACTION [None]
